FAERS Safety Report 4375392-2 (Version None)
Quarter: 2004Q2

REPORT INFORMATION
  Report Type: 
  Country: None (occurrence: None)
  Receive Date: 20040528
  Receipt Date: 20040511
  Transmission Date: 20050107
  Serious: Yes (Hospitalization)
  Sender: FDA-Public Use
  Company Number: THYM-10156

PATIENT
  Age: 52 Year
  Sex: Male
  Weight: 106.5953 kg

DRUGS (10)
  1. THYMOGLOBULIN [Suspect]
     Indication: RENAL TRANSPLANT
     Dosage: 125 MG QD IV
     Route: 042
     Dates: start: 20040422, end: 20040422
  2. THYMOGLOBULIN [Suspect]
     Indication: RENAL TRANSPLANT
     Dosage: 100 MG QD IV
     Route: 042
     Dates: start: 20040423, end: 20040428
  3. TYLENOL [Concomitant]
  4. BENADRYL [Concomitant]
  5. STEROIDS [Concomitant]
  6. GANCICLOVIR [Concomitant]
  7. CELLCEPT [Concomitant]
  8. BACTRIM [Concomitant]
  9. ANCEF [Concomitant]
  10. STEROIDS [Concomitant]

REACTIONS (1)
  - THROMBOTIC MICROANGIOPATHY [None]
